FAERS Safety Report 19381288 (Version 2)
Quarter: 2021Q2

REPORT INFORMATION
  Report Type: Report from Study
  Country: TW (occurrence: TW)
  Receive Date: 20210607
  Receipt Date: 20210622
  Transmission Date: 20210717
  Serious: Yes (Hospitalization)
  Sender: FDA-Public Use
  Company Number: TW-ROCHE-2836533

PATIENT
  Age: 62 Year
  Sex: Male
  Weight: 53 kg

DRUGS (6)
  1. URIEF [Concomitant]
     Active Substance: SILODOSIN
     Indication: BENIGN PROSTATIC HYPERPLASIA
     Route: 048
     Dates: start: 20210516
  2. TRACETON [Concomitant]
     Indication: GASTROINTESTINAL TUBE INSERTION
     Route: 048
     Dates: start: 20210513, end: 20210519
  3. ATEZOLIZUMAB. [Suspect]
     Active Substance: ATEZOLIZUMAB
     Indication: SQUAMOUS CELL CARCINOMA OF HEAD AND NECK
     Dosage: MOST RECENT DOSE OF STUDY PRIOR TO AE AND SAE : 10/MAY/2021?ON DAY 1 OF EACH 21?DAY CYCLE(AS PER PRO
     Route: 041
     Dates: start: 20210510
  4. ACETAMINOPHEN. [Concomitant]
     Active Substance: ACETAMINOPHEN
     Indication: GASTROINTESTINAL TUBE INSERTION
     Dosage: GIVEN FOR PROPHYLAXIS : YES
     Route: 048
     Dates: start: 20210513, end: 20210522
  5. SENNOSIDES. [Concomitant]
     Active Substance: SENNOSIDES
     Indication: CONSTIPATION
     Dosage: GIVEN FOR PROPHYLAXIS : YES
     Route: 048
     Dates: start: 20210516
  6. TIRAGOLUMAB. [Suspect]
     Active Substance: TIRAGOLUMAB
     Indication: SQUAMOUS CELL CARCINOMA OF HEAD AND NECK
     Dosage: MOST RECENT DOSE OF STUDY DRUG PRIOR TO AE AND SAE : 10/MAY/2021?ON DAY 1 OF EACH 21?DAY CYCLE(AS PE
     Route: 042
     Dates: start: 20210510

REACTIONS (1)
  - Wound infection [Recovering/Resolving]

NARRATIVE: CASE EVENT DATE: 20210522
